FAERS Safety Report 14319952 (Version 11)
Quarter: 2018Q2

REPORT INFORMATION
  Report Type: Spontaneous
  Country: FR (occurrence: FR)
  Receive Date: 20171222
  Receipt Date: 20180515
  Transmission Date: 20180711
  Serious: Yes (Death, Life-Threatening, Other)
  Sender: FDA-Public Use
  Company Number: FR-PFIZER INC-2017541475

PATIENT
  Age: 25 Year
  Sex: Female
  Weight: 84 kg

DRUGS (22)
  1. RASBURICASE [Suspect]
     Active Substance: RASBURICASE
     Indication: PROPHYLAXIS
     Dosage: 1 INJECTION
     Route: 065
     Dates: start: 20170708
  2. NOREPINEPHRINE BITARTRATE. [Suspect]
     Active Substance: NOREPINEPHRINE BITARTRATE
     Indication: CARDIOVASCULAR DISORDER
     Dosage: UP TO 14MG/H
     Route: 065
     Dates: start: 20170715
  3. EPINEPHRINE. [Suspect]
     Active Substance: EPINEPHRINE
     Indication: CARDIOVASCULAR DISORDER
     Dosage: 8 MG, UNK
     Route: 065
     Dates: start: 20170715
  4. DOBUTAMINE HYDROCHLORIDE. [Suspect]
     Active Substance: DOBUTAMINE HYDROCHLORIDE
     Indication: CARDIOVASCULAR DISORDER
     Dosage: 7.5 GAMMA/KG/MIN
     Route: 065
     Dates: start: 201707, end: 201707
  5. NOREPINEPHRINE BITARTRATE. [Suspect]
     Active Substance: NOREPINEPHRINE BITARTRATE
     Indication: ADVERSE EVENT
     Dosage: UP TO 1.5MG/KG
     Route: 065
     Dates: start: 201707, end: 201707
  6. TAZOCILLINE [Suspect]
     Active Substance: PIPERACILLIN SODIUM\TAZOBACTAM SODIUM
     Dosage: UNK
     Route: 065
  7. HEMOSOL B0 [Suspect]
     Active Substance: CALCIUM CL\DEXTROSE\LACTIC ACID\MAGNESIUM CL\POTASSIUM CL\SODIUM BICAR\SODIUM CL
     Indication: HAEMOFILTRATION
     Dosage: 3 L, EVERY HOUR (72 LITERS/DAY IN TOTAL)
     Route: 042
     Dates: start: 20170715, end: 20170715
  8. POTASSIUM CHLORIDE AGUETTANT [Suspect]
     Active Substance: POTASSIUM CHLORIDE\SODIUM CHLORIDE
     Indication: TUMOUR LYSIS SYNDROME
     Dosage: 5 G, CYCLIC, ADDED IN PRE DILUTION BAG, FLOWWAS 1LITER PER HOUR
     Route: 042
     Dates: start: 20170715, end: 20170715
  9. PHOXILIUM [Suspect]
     Active Substance: CALCIUM CL\MAGNESIUM CL\POTASSIUM CL\SODIUM BICAR\SODIUM CL\SODIUM PHOSPHATE,DIB
     Indication: HAEMOFILTRATION
     Dosage: 3 L, QH (72 LITERS/DAY IN TOTAL)
     Route: 065
     Dates: start: 20170715, end: 20170715
  10. SODIUM BICARBONATE. [Suspect]
     Active Substance: SODIUM BICARBONATE
     Indication: ADVERSE EVENT
     Dosage: 8.4% MOLAR VIALS
     Route: 065
     Dates: start: 20170715
  11. SODIUM CHLORIDE. [Suspect]
     Active Substance: SODIUM CHLORIDE
     Indication: HAEMOFILTRATION
  12. INSULIN [Suspect]
     Active Substance: INSULIN NOS
     Dosage: 30 IU, DAILY
     Dates: start: 20170715
  13. EPINEPHRINE. [Suspect]
     Active Substance: EPINEPHRINE
     Indication: ADVERSE EVENT
  14. DOBUTAMINE HYDROCHLORIDE. [Suspect]
     Active Substance: DOBUTAMINE HYDROCHLORIDE
     Indication: ADVERSE EVENT
     Dosage: UP TO 1.5MG / KG
     Route: 065
     Dates: start: 201707, end: 201707
  15. GLUCOSE [Suspect]
     Active Substance: DEXTROSE
     Dosage: 250 ML, UNK (MEDICATION DILUTION)
     Dates: start: 20150715
  16. METHYLPREDNISOLONE. [Suspect]
     Active Substance: METHYLPREDNISOLONE
     Dosage: UNK
     Route: 065
     Dates: start: 20170707
  17. AMIODARONE HCL [Suspect]
     Active Substance: AMIODARONE HYDROCHLORIDE
     Indication: HAEMOFILTRATION
     Dosage: 600 MG, 1X/DAY
     Route: 065
     Dates: start: 20170715
  18. GLUCOSE [Suspect]
     Active Substance: DEXTROSE
     Indication: MEDICATION DILUTION
     Dosage: MEDICATION DILUTION
     Route: 065
     Dates: start: 20170715
  19. HEPARIN SODIUM. [Suspect]
     Active Substance: HEPARIN SODIUM
     Dosage: UNK
     Route: 065
  20. AMIODARONE HCL [Suspect]
     Active Substance: AMIODARONE HYDROCHLORIDE
     Indication: ADVERSE EVENT
  21. INSULIN [Suspect]
     Active Substance: INSULIN NOS
     Indication: ADVERSE EVENT
     Dosage: 60 IU, 1X/DAY
     Route: 065
     Dates: start: 20170715
  22. HEPARIN [Concomitant]
     Active Substance: HEPARIN SODIUM
     Dosage: UNK

REACTIONS (14)
  - Cerebral haematoma [Fatal]
  - Cardiovascular insufficiency [Fatal]
  - General physical health deterioration [Fatal]
  - Respiratory failure [Fatal]
  - Tumour lysis syndrome [Fatal]
  - Nervous system disorder [Fatal]
  - Malaise [Fatal]
  - Cardio-respiratory arrest [Fatal]
  - Blood phosphorus increased [Fatal]
  - Ventricular fibrillation [Fatal]
  - Renal failure [Fatal]
  - Incorrect dose administered [Fatal]
  - Cerebrovascular accident [Fatal]
  - Hyperkalaemia [Fatal]

NARRATIVE: CASE EVENT DATE: 20170715
